FAERS Safety Report 6100875-4 (Version None)
Quarter: 2009Q1

REPORT INFORMATION
  Report Type: 
  Country: None (occurrence: None)
  Receive Date: 20090304
  Receipt Date: 20090218
  Transmission Date: 20090719
  Serious: Yes (Other)
  Sender: FDA-Public Use
  Company Number: PHHY2009DE06449

PATIENT
  Age: 83 Year
  Sex: Female

DRUGS (2)
  1. DIOVAN HCT [Suspect]
     Indication: HYPERTENSION
     Dosage: 160/12.5 MG
     Dates: start: 20050101
  2. ASS ^CT-ARZNEIMITTEL^ [Concomitant]
     Dosage: UNK
     Dates: start: 20070101

REACTIONS (6)
  - ABASIA [None]
  - BACK PAIN [None]
  - BLOOD PRESSURE INCREASED [None]
  - LIMB DISCOMFORT [None]
  - MYALGIA [None]
  - PAIN [None]
